FAERS Safety Report 4317726-0 (Version None)
Quarter: 2004Q1

REPORT INFORMATION
  Report Type: 
  Country: None (occurrence: None)
  Receive Date: 20040312
  Receipt Date: 20040308
  Transmission Date: 20041129
  Serious: Yes (Hospitalization)
  Sender: FDA-Public Use
  Company Number: 040308-0000308

PATIENT
  Age: 36 Year
  Sex: Male

DRUGS (1)
  1. DESOXYN (METAMPHETAMINE HCL) [Suspect]

REACTIONS (8)
  - ABNORMAL BEHAVIOUR [None]
  - ASTHENIA [None]
  - DISLOCATION OF VERTEBRA [None]
  - HEAD INJURY [None]
  - HYPOAESTHESIA [None]
  - MUSCULAR WEAKNESS [None]
  - RESTLESSNESS [None]
  - SPINAL FRACTURE [None]
